FAERS Safety Report 5233435-8 (Version None)
Quarter: 2007Q1

REPORT INFORMATION
  Report Type: 
  Country: None (occurrence: None)
  Receive Date: 20070208
  Receipt Date: 20070130
  Transmission Date: 20070707
  Serious: Yes (Disabling)
  Sender: FDA-Public Use
  Company Number: US-JNJFOC-20060804964

PATIENT
  Sex: Female
  Weight: 66.23 kg

DRUGS (10)
  1. LEVAQUIN [Suspect]
     Indication: LUNG INFECTION
     Route: 065
  2. LEVAQUIN [Suspect]
     Indication: BRONCHITIS
     Route: 065
  3. LEVAQUIN [Suspect]
     Indication: SINUSITIS
     Route: 065
  4. PREMARIN [Concomitant]
     Route: 065
  5. PROTONIX [Concomitant]
     Route: 065
  6. ZYRTEC [Concomitant]
     Route: 065
  7. CLARINEX [Concomitant]
     Route: 065
  8. PAXIL [Concomitant]
     Route: 065
  9. DIAVAN [Concomitant]
     Indication: HYPERTENSION
     Route: 065
  10. ZESTRIL [Concomitant]
     Indication: HYPERTENSION
     Route: 065

REACTIONS (6)
  - ASTHMA [None]
  - BRONCHIECTASIS [None]
  - BURSITIS [None]
  - PAIN IN EXTREMITY [None]
  - ROTATOR CUFF SYNDROME [None]
  - TENDONITIS [None]
